FAERS Safety Report 5082071-5 (Version None)
Quarter: 2006Q3

REPORT INFORMATION
  Report Type: 
  Country: None (occurrence: None)
  Receive Date: 20060811
  Receipt Date: 20060803
  Transmission Date: 20061208
  Serious: Yes (Hospitalization)
  Sender: FDA-Public Use
  Company Number: 2006092610

PATIENT
  Age: 20 Year
  Sex: Female

DRUGS (13)
  1. FLAGYL [Suspect]
     Indication: DRUG USE FOR UNKNOWN INDICATION
     Dosage: 500 MG
     Dates: start: 20060422, end: 20060430
  2. ONCASPAR [Suspect]
     Indication: ACUTE LYMPHOCYTIC LEUKAEMIA
     Dosage: 2500 IU/M2, INTRAVENOUS
     Route: 042
     Dates: start: 20060424, end: 20060424
  3. ACICLOVIR SODIUM INJ. (ACICLOVIR) [Suspect]
     Indication: DRUG USE FOR UNKNOWN INDICATION
     Dosage: 380 MG, INTRAVENOUS
     Route: 042
     Dates: start: 20060422, end: 20060508
  4. SPASFON (PHLORGLUCINOL, TRIMETHYLPHLOROGLUCINOL) [Concomitant]
  5. ZOFRAN [Concomitant]
  6. NUBAIN [Concomitant]
  7. ACETAMINOPHEN [Concomitant]
  8. AMIKIN [Concomitant]
  9. CLAVENTIN (CLAVULANATE POTASSIUM, TICARCILLIN DISODIUM) [Concomitant]
  10. VANCOMYCIN HCL [Concomitant]
  11. BACTRIM [Concomitant]
  12. PLITICAN (ALIZAPRIDE HYDROCHLORIDE) [Concomitant]
  13. AMBISOME [Concomitant]

REACTIONS (4)
  - APLASIA [None]
  - MUCOSAL INFLAMMATION [None]
  - PANCREATITIS [None]
  - RECTAL HAEMORRHAGE [None]
